FAERS Safety Report 6214292-X (Version None)
Quarter: 2009Q2

REPORT INFORMATION
  Report Type: 
  Country: None (occurrence: None)
  Receive Date: 20090602
  Receipt Date: 20090520
  Transmission Date: 20091009
  Serious: Yes (Hospitalization)
  Sender: FDA-Public Use
  Company Number: DAV-AE-ATE-09-002

PATIENT
  Age: 45 Year
  Sex: Female

DRUGS (4)
  1. ATENOLOL [Suspect]
  2. NIFEDIPINE [Concomitant]
  3. BENZODIAZEPINE [Concomitant]
  4. COUMADIN [Concomitant]

REACTIONS (18)
  - ANURIA [None]
  - ATRIOVENTRICULAR BLOCK FIRST DEGREE [None]
  - BLOOD CREATININE INCREASED [None]
  - BLOOD POTASSIUM INCREASED [None]
  - BLOOD PRESSURE DECREASED [None]
  - CELL DEATH [None]
  - CEREBRAL HAEMORRHAGE [None]
  - COMA [None]
  - DIALYSIS [None]
  - DRUG TOXICITY [None]
  - ILEUS PARALYTIC [None]
  - LACTIC ACIDOSIS [None]
  - METABOLIC ACIDOSIS [None]
  - MULTI-ORGAN FAILURE [None]
  - PRODUCT COMMINGLING [None]
  - RESPIRATORY ACIDOSIS [None]
  - RHABDOMYOLYSIS [None]
  - WEANING FAILURE [None]
